FAERS Safety Report 17875016 (Version 1)
Quarter: 2020Q2

REPORT INFORMATION
  Report Type: Spontaneous
  Country: US (occurrence: US)
  Receive Date: 20200608
  Receipt Date: 20200608
  Transmission Date: 20200714
  Serious: Yes (Other)
  Sender: FDA-Public Use
  Company Number: None

PATIENT
  Age: 91 Year
  Sex: Male
  Weight: 84.8 kg

DRUGS (15)
  1. PLAVIX [Concomitant]
     Active Substance: CLOPIDOGREL BISULFATE
     Dates: start: 20200603, end: 20200608
  2. TAMSULOSIN [Concomitant]
     Active Substance: TAMSULOSIN
     Dates: start: 20200703, end: 20200608
  3. ISOSORBIDE MONONITRATE. [Concomitant]
     Active Substance: ISOSORBIDE MONONITRATE
     Dates: end: 20200608
  4. AMIODARONE [Concomitant]
     Active Substance: AMIODARONE
     Dates: start: 20200603, end: 20200608
  5. INSULIN [Concomitant]
     Active Substance: INSULIN NOS
     Dates: start: 20200604
  6. BUMEX [Concomitant]
     Active Substance: BUMETANIDE
     Dates: start: 20200603, end: 20200608
  7. METOPROLOL. [Concomitant]
     Active Substance: METOPROLOL
     Dates: start: 20200604
  8. HYDRALAZINE [Concomitant]
     Active Substance: HYDRALAZINE HYDROCHLORIDE
     Dates: start: 20200603, end: 20200608
  9. REMDESIVIR. [Suspect]
     Active Substance: REMDESIVIR
     Indication: COVID-19
     Dates: start: 20200606
  10. HEPARIN [Concomitant]
     Active Substance: HEPARIN SODIUM
  11. APIXABAN [Concomitant]
     Active Substance: APIXABAN
     Dates: start: 20200603, end: 20200608
  12. COVALESCENT PLASMA [Concomitant]
  13. DEXAMETHASONE. [Concomitant]
     Active Substance: DEXAMETHASONE
     Dates: start: 20200607
  14. PROTONIX [Concomitant]
     Active Substance: PANTOPRAZOLE SODIUM
     Dates: start: 20200603
  15. NITROGLYCERIN PATCH [Concomitant]
     Active Substance: NITROGLYCERIN
     Dates: start: 20200608

REACTIONS (3)
  - Blood creatinine increased [None]
  - Renal impairment [None]
  - Glomerular filtration rate decreased [None]

NARRATIVE: CASE EVENT DATE: 20200608
